FAERS Safety Report 8461381-5 (Version None)
Quarter: 2012Q2

REPORT INFORMATION
  Report Type: 
  Country: None (occurrence: None)
  Receive Date: 20120625
  Receipt Date: 20120614
  Transmission Date: 20120825
  Serious: Yes (Other)
  Sender: FDA-Public Use
  Company Number: CA-JNJFOC-20120513492

PATIENT
  Sex: Female
  Weight: 75 kg

DRUGS (11)
  1. LOVAZA [Concomitant]
     Route: 065
  2. FLUOXETINE [Concomitant]
     Dosage: DAILY
     Route: 065
  3. HYDRA-ZIDE [Concomitant]
     Dosage: DAILY
     Route: 065
  4. METHOTREXATE [Concomitant]
     Dosage: DAILY
     Route: 065
  5. LIPITOR [Concomitant]
     Dosage: DAILY
     Route: 065
  6. POTASSIUM CHLORIDE [Concomitant]
     Dosage: DAILY
     Route: 065
  7. AMLODIPINE [Concomitant]
     Dosage: DAILY
     Route: 065
  8. FOLIC ACID [Concomitant]
     Dosage: DAILY
     Route: 065
  9. ALENDRONATE SODIUM [Concomitant]
     Dosage: DAILY
     Route: 065
  10. REMICADE [Suspect]
     Indication: PSORIATIC ARTHROPATHY
     Route: 042
     Dates: start: 20120515, end: 20120501
  11. VITAMIN D [Concomitant]
     Dosage: 1000 IU DAILY
     Route: 065

REACTIONS (2)
  - DRUG HYPERSENSITIVITY [None]
  - INFUSION RELATED REACTION [None]
